FAERS Safety Report 18485151 (Version 3)
Quarter: 2021Q1

REPORT INFORMATION
  Report Type: Spontaneous
  Country: CA (occurrence: CA)
  Receive Date: 20201110
  Receipt Date: 20210120
  Transmission Date: 20210419
  Serious: Yes (Other)
  Sender: FDA-Public Use
  Company Number: CA-ORION CORPORATION ORION PHARMA-20_00011666

PATIENT
  Age: 76 Year
  Sex: Female

DRUGS (9)
  1. ROFACT [Concomitant]
     Indication: LATENT TUBERCULOSIS
     Route: 065
     Dates: start: 2020
  2. PANTOPRAZOLE [Concomitant]
     Active Substance: PANTOPRAZOLE
     Route: 065
  3. HYDROXYCHLOROQUINE [Concomitant]
     Active Substance: HYDROXYCHLOROQUINE
     Route: 065
  4. METHOTREXATE (TRADE NAME UNKNOWN) [Suspect]
     Active Substance: METHOTREXATE
     Indication: PRODUCT USED FOR UNKNOWN INDICATION
     Route: 065
     Dates: start: 20190926
  5. CORTISONE [Concomitant]
     Active Substance: CORTISONE
     Indication: INSOMNIA
  6. CANDESARTAN. [Concomitant]
     Active Substance: CANDESARTAN
     Route: 065
  7. ESTROGEN [Concomitant]
     Active Substance: ESTROGENS
     Route: 065
  8. CORTISONE [Concomitant]
     Active Substance: CORTISONE
     Indication: PAIN
     Route: 030
     Dates: start: 20201028, end: 20201028
  9. LEFLUNOMIDE. [Concomitant]
     Active Substance: LEFLUNOMIDE
     Route: 065
     Dates: start: 20200403

REACTIONS (5)
  - Somnolence [Unknown]
  - Drug intolerance [Unknown]
  - Fatigue [Unknown]
  - Vertigo [Unknown]
  - Fall [Unknown]

NARRATIVE: CASE EVENT DATE: 20190926
